FAERS Safety Report 18752624 (Version 3)
Quarter: 2021Q2

REPORT INFORMATION
  Report Type: Spontaneous
  Country: CA (occurrence: CA)
  Receive Date: 20210118
  Receipt Date: 20210422
  Transmission Date: 20210717
  Serious: Yes (Other)
  Sender: FDA-Public Use
  Company Number: CA-PURDUE-USA-2020-0171011

PATIENT
  Age: 47 Year
  Sex: Female

DRUGS (2)
  1. OXYCONTIN [Suspect]
     Active Substance: OXYCODONE HYDROCHLORIDE
     Indication: PRODUCT USED FOR UNKNOWN INDICATION
     Dosage: UNK
     Route: 048
  2. OXYNEO [Suspect]
     Active Substance: OXYCODONE
     Indication: PRODUCT USED FOR UNKNOWN INDICATION
     Dosage: UNK
     Route: 048

REACTIONS (9)
  - Liver disorder [Unknown]
  - Drug dependence [Unknown]
  - Dyspnoea [Unknown]
  - Pain [Unknown]
  - Drug withdrawal syndrome [Unknown]
  - Tooth loss [Unknown]
  - Bone erosion [Unknown]
  - Depression [Unknown]
  - Illness [Unknown]
